FAERS Safety Report 5959196-2 (Version None)
Quarter: 2008Q4

REPORT INFORMATION
  Report Type: 
  Country: None (occurrence: None)
  Receive Date: 20081120
  Receipt Date: 20080605
  Transmission Date: 20090506
  Serious: No
  Sender: FDA-Public Use
  Company Number: A0732260A

PATIENT
  Age: 27 Year
  Sex: Female
  Weight: 86.4 kg

DRUGS (2)
  1. BUPROPION HCL [Suspect]
     Indication: ANXIETY
     Dosage: 100MG PER DAY
     Route: 048
     Dates: start: 20080529
  2. ORAL CONTRACEPTIVE [Concomitant]
     Route: 048

REACTIONS (1)
  - PANIC ATTACK [None]
